FAERS Safety Report 8454191-6 (Version None)
Quarter: 2012Q2

REPORT INFORMATION
  Report Type: 
  Country: None (occurrence: None)
  Receive Date: 20120620
  Receipt Date: 20120613
  Transmission Date: 20120825
  Serious: Yes (Death, Hospitalization)
  Sender: FDA-Public Use
  Company Number: DE-ROCHE-1077965

PATIENT
  Sex: Female
  Weight: 58 kg

DRUGS (4)
  1. XELODA [Suspect]
     Indication: BREAST CANCER METASTATIC
     Dosage: LAST DOSE PRIOR TO SAE: 29/MAY/2012
     Route: 048
     Dates: start: 20111107
  2. VINORELBINE TARTRATE [Suspect]
     Indication: BREAST CANCER METASTATIC
     Dosage: LAST DOSE PRIOR TO SAE: 29/MAY/2012
     Route: 042
     Dates: start: 20111107
  3. AVASTIN [Suspect]
     Indication: BREAST CANCER METASTATIC
     Dosage: LAST DOSE PRIOR TO SAE: 21/MAY/2012
     Dates: start: 20111107
  4. INSULIN [Concomitant]

REACTIONS (2)
  - SEPSIS [None]
  - NEUTROPENIA [None]
